FAERS Safety Report 13127211 (Version 1)
Quarter: 2017Q1

REPORT INFORMATION
  Report Type: Spontaneous
  Country: US (occurrence: US)
  Receive Date: 20170118
  Receipt Date: 20170118
  Transmission Date: 20170428
  Serious: No
  Sender: FDA-Public Use
  Company Number: US-ROCHE-1683439

PATIENT
  Age: 60 Year
  Sex: Female

DRUGS (19)
  1. RITUXAN [Suspect]
     Active Substance: RITUXIMAB
     Dosage: SECOND INFUSION
     Route: 042
     Dates: start: 20151217
  2. LEVOTHYROXIN [Concomitant]
     Active Substance: LEVOTHYROXINE
  3. RITUXAN [Suspect]
     Active Substance: RITUXIMAB
     Indication: RHEUMATOID ARTHRITIS
     Dosage: EVERY SIX MONTHS, ON HER 3RD CYCLE
     Route: 042
     Dates: start: 20151203
  4. NORCO [Concomitant]
     Active Substance: ACETAMINOPHEN\HYDROCODONE BITARTRATE
     Indication: PAIN
  5. VITAMIN B12 [Concomitant]
     Active Substance: CYANOCOBALAMIN
     Route: 065
  6. CLONIDINE. [Concomitant]
     Active Substance: CLONIDINE
     Indication: HYPERTENSION
  7. BYSTOLIC [Concomitant]
     Active Substance: NEBIVOLOL HYDROCHLORIDE
     Indication: BLOOD PRESSURE MEASUREMENT
  8. FOLIC ACID. [Concomitant]
     Active Substance: FOLIC ACID
  9. PREDNISONE. [Concomitant]
     Active Substance: PREDNISONE
     Indication: RHEUMATOID ARTHRITIS
  10. ZOLPIDEM [Concomitant]
     Active Substance: ZOLPIDEM\ZOLPIDEM TARTRATE
     Indication: INSOMNIA
  11. GLIMEPIRIDE. [Concomitant]
     Active Substance: GLIMEPIRIDE
     Indication: DIABETES MELLITUS
  12. METAXALONE. [Concomitant]
     Active Substance: METAXALONE
     Indication: MUSCLE SPASMS
  13. METHOTREXATE. [Concomitant]
     Active Substance: METHOTREXATE
     Indication: RHEUMATOID ARTHRITIS
     Route: 065
  14. GABAPENTIN. [Concomitant]
     Active Substance: GABAPENTIN
     Indication: NEURALGIA
     Dosage: I PILL IN THE MORNING AND 3-4 PILLS AT NIGHT
     Route: 065
  15. GABAPENTIN. [Concomitant]
     Active Substance: GABAPENTIN
     Dosage: AS NEEDED
     Route: 065
  16. METOPROLOL. [Concomitant]
     Active Substance: METOPROLOL
     Indication: HYPERTENSION
  17. LORAZEPAM. [Concomitant]
     Active Substance: LORAZEPAM
     Indication: ANXIETY
  18. RITUXAN [Suspect]
     Active Substance: RITUXIMAB
     Dosage: THIRD INFUSION
     Route: 042
  19. PERCOCET [Concomitant]
     Active Substance: ACETAMINOPHEN\OXYCODONE HYDROCHLORIDE
     Indication: MUSCLE SPASMS

REACTIONS (7)
  - Hypertension [Unknown]
  - Asthenia [Unknown]
  - Nausea [Unknown]
  - Feeling abnormal [Unknown]
  - Abdominal pain upper [Unknown]
  - Headache [Not Recovered/Not Resolved]
  - Back pain [Unknown]

NARRATIVE: CASE EVENT DATE: 20151203
